FAERS Safety Report 6345538-5 (Version None)
Quarter: 2009Q3

REPORT INFORMATION
  Report Type: 
  Country: None (occurrence: None)
  Receive Date: 20090909
  Receipt Date: 20090827
  Transmission Date: 20100115
  Serious: Yes (Other)
  Sender: FDA-Public Use
  Company Number: JP-PFIZER INC-2009249911

PATIENT
  Age: 72 Year

DRUGS (13)
  1. MEDROL [Suspect]
     Indication: APLASTIC ANAEMIA
     Dosage: 8MG/DAY
     Route: 048
     Dates: start: 20081202
  2. MEDROL [Suspect]
     Dosage: 4 MG, 2X/DAY
  3. MEDROL [Suspect]
     Dosage: 12MG AM AND 4MG PM
     Route: 048
     Dates: start: 20090401
  4. NEORAL [Concomitant]
     Dosage: UNK
     Route: 048
     Dates: start: 20070518, end: 20090703
  5. TAKEPRON [Concomitant]
     Dosage: UNK
     Route: 048
  6. LASIX [Concomitant]
     Dosage: UNK
     Route: 048
  7. PRIMOBOLAN [Concomitant]
     Dosage: UNK
     Route: 048
  8. PERSANTINE [Concomitant]
     Dosage: UNK
     Route: 048
  9. MARZULENE S [Concomitant]
     Dosage: UNK
     Route: 048
  10. MAGNESIUM OXIDE [Concomitant]
     Dosage: UNK
     Route: 048
  11. MOHRUS [Concomitant]
     Dosage: UNK
     Route: 062
  12. ISODINE [Concomitant]
     Dosage: UNK
     Route: 048
  13. TOUKISYAKUYAKUSAN [Concomitant]
     Dosage: UNK
     Route: 048

REACTIONS (4)
  - CUSHINGOID [None]
  - LIVER FUNCTION TEST ABNORMAL [None]
  - OEDEMA [None]
  - PURPURA [None]
